FAERS Safety Report 7329330-0 (Version None)
Quarter: 2011Q1

REPORT INFORMATION
  Report Type: 
  Country: None (occurrence: None)
  Receive Date: 20110303
  Receipt Date: 20110224
  Transmission Date: 20110831
  Serious: Yes (Hospitalization)
  Sender: FDA-Public Use
  Company Number: CH-MERCK-1102USA03202

PATIENT
  Sex: Female

DRUGS (11)
  1. BONIVA [Suspect]
     Indication: OSTEOPOROSIS
     Route: 048
     Dates: start: 20061101, end: 20110220
  2. MODURETIC 5-50 [Concomitant]
     Indication: ESSENTIAL HYPERTENSION
     Route: 048
  3. CONDROSULF [Concomitant]
     Route: 065
  4. STATIN (UNSPECIFIED) [Concomitant]
     Route: 065
  5. LEXOTANIL [Concomitant]
     Indication: SLEEP DISORDER
     Route: 048
  6. VOLTAFLEX [Concomitant]
     Route: 065
  7. LIMBITROL TABLETS [Concomitant]
     Indication: DEPRESSION
     Route: 065
  8. CALCIMAGON [Concomitant]
     Route: 048
  9. TENORMIN [Concomitant]
     Indication: ESSENTIAL HYPERTENSION
     Route: 048
  10. FOSAMAX [Suspect]
     Indication: OSTEOPOROSIS
     Route: 048
     Dates: start: 20000701, end: 20061101
  11. CIMIFEMIN [Concomitant]
     Indication: MENOPAUSE
     Route: 065

REACTIONS (1)
  - LOWER LIMB FRACTURE [None]
